FAERS Safety Report 7088764-2 (Version None)
Quarter: 2010Q4

REPORT INFORMATION
  Report Type: 
  Country: None (occurrence: None)
  Receive Date: 20101108
  Receipt Date: 20101025
  Transmission Date: 20110411
  Serious: Yes (Hospitalization, Other)
  Sender: FDA-Public Use
  Company Number: PHHY2010DE20172

PATIENT
  Sex: Female
  Weight: 80 kg

DRUGS (5)
  1. ZOLEDRONATE T29581+ [Suspect]
     Indication: BONE DISORDER
     Dosage: 4 MG EVERY 4 WEEK
     Route: 042
     Dates: start: 20100106
  2. TAXOL [Concomitant]
     Dosage: 100 MG WEEKLY
     Dates: start: 20091201
  3. AVASTIN [Concomitant]
     Dosage: WEEKLY
  4. EPIRUBICIN [Concomitant]
     Dosage: 90 MG WEEKLY
     Dates: start: 20091201
  5. NAVELBINE [Concomitant]
     Dosage: UNK
     Dates: start: 20100927

REACTIONS (8)
  - ALOPECIA [None]
  - ANAEMIA [None]
  - BREAST NECROSIS [None]
  - GENERAL PHYSICAL HEALTH DETERIORATION [None]
  - LEUKOPENIA [None]
  - MALIGNANT NEOPLASM PROGRESSION [None]
  - NAUSEA [None]
  - VOMITING [None]
